FAERS Safety Report 5799734-6 (Version None)
Quarter: 2008Q3

REPORT INFORMATION
  Report Type: 
  Country: None (occurrence: None)
  Receive Date: 20080703
  Receipt Date: 20080625
  Transmission Date: 20090109
  Serious: Yes (Other)
  Sender: FDA-Public Use
  Company Number: US-ASTRAZENECA-2008UW12738

PATIENT
  Age: 20 Year
  Sex: Female

DRUGS (2)
  1. SEROQUEL [Suspect]
     Route: 048
  2. DEPO-PROVERA [Concomitant]

REACTIONS (3)
  - ABDOMINAL PAIN [None]
  - BREAST DISCHARGE [None]
  - SOMNOLENCE [None]
